FAERS Safety Report 4375815-9 (Version None)
Quarter: 2004Q2

REPORT INFORMATION
  Report Type: 
  Country: None (occurrence: None)
  Receive Date: 20040611
  Receipt Date: 20040429
  Transmission Date: 20050107
  Serious: Yes (Death, Life-Threatening, Hospitalization, Disabling)
  Sender: FDA-Public Use
  Company Number: 200411364EU

PATIENT
  Age: 71 Year
  Sex: Male
  Weight: 59.2 kg

DRUGS (12)
  1. DOCETAXEL [Suspect]
     Indication: PROSTATE CANCER
     Route: 042
     Dates: start: 20040204, end: 20040330
  2. IRESSA [Suspect]
     Indication: PROSTATE CANCER
     Route: 048
     Dates: start: 20040204, end: 20040419
  3. ANALGESIC LIQ [Concomitant]
     Indication: PAIN
  4. BETADINE ^PURDUE^ [Concomitant]
     Dates: start: 20040224
  5. VALTREX [Concomitant]
     Indication: HERPES SIMPLEX
     Dates: start: 20040224
  6. LIDOCAINE [Concomitant]
     Indication: HYPOAESTHESIA ORAL
     Route: 002
     Dates: start: 20040224
  7. BEPANTHENE [Concomitant]
     Indication: HAEMORRHAGE
     Dates: start: 20040316
  8. IMODIUM [Concomitant]
     Indication: DIARRHOEA
     Dates: start: 20040316
  9. NEXIUM [Concomitant]
     Indication: REFLUX OESOPHAGITIS
     Dates: start: 20040406
  10. VOLTAREN [Concomitant]
     Indication: EXTRAVASATION
     Dates: start: 20040406
  11. RED BLOOD CELLS [Concomitant]
     Indication: ANAEMIA
     Dates: start: 20040407
  12. DIFLUCAN [Concomitant]
     Indication: CANDIDIASIS

REACTIONS (3)
  - CHRONIC OBSTRUCTIVE AIRWAYS DISEASE EXACERBATED [None]
  - DYSPNOEA [None]
  - PROSTATIC SPECIFIC ANTIGEN INCREASED [None]
